FAERS Safety Report 24463799 (Version 1)
Quarter: 2024Q4

REPORT INFORMATION
  Report Type: Report from Study
  Country: US (occurrence: US)
  Receive Date: 20241018
  Receipt Date: 20241018
  Transmission Date: 20250115
  Serious: No
  Sender: ROCHE
  Company Number: US-ROCHE-3494415

PATIENT
  Age: 74 Year
  Sex: Female

DRUGS (4)
  1. XOLAIR [Suspect]
     Active Substance: OMALIZUMAB
     Indication: Pemphigoid
     Dosage: DATE OF SERVICE: 26/OCT/2023, 30/NOV/2023, 02/JAN/2024?INJECT 2 SYRINGES (300MG TOTAL) SUBCUTANEOUSL
     Route: 058
  2. XOLAIR [Suspect]
     Active Substance: OMALIZUMAB
  3. INSULIN NOS [Concomitant]
     Active Substance: INSULIN NOS
  4. TRULICITY [Concomitant]
     Active Substance: DULAGLUTIDE

REACTIONS (8)
  - Off label use [Unknown]
  - Urinary tract infection [Unknown]
  - Chondropathy [Unknown]
  - Joint swelling [Unknown]
  - Anxiety [Unknown]
  - Blister [Unknown]
  - Autoimmune disorder [Unknown]
  - Illness [Unknown]
